FAERS Safety Report 8422327 (Version 4)
Quarter: 2013Q1

REPORT INFORMATION
  Report Type: Spontaneous
  Country: US (occurrence: None)
  Receive Date: 20120214
  Receipt Date: 20130128
  Transmission Date: 20140127
  Serious: Yes (Hospitalization, Other)
  Sender: FDA-Public Use
  Company Number: JPI-P-019520

PATIENT
  Age: 22 Year
  Sex: Male

DRUGS (9)
  1. XYREM [Suspect]
     Indication: NARCOLEPSY
     Dosage: 1.5 GM (0.75 GM,2 IN 1 D),ORAL ; ORAL ; 6 GM (3 GM,2 IN 1 D),ORAL
     Route: 048
     Dates: start: 20080227
  2. XYREM [Suspect]
     Indication: SOMNOLENCE
     Dosage: 1.5 GM (0.75 GM,2 IN 1 D),ORAL ; ORAL ; 6 GM (3 GM,2 IN 1 D),ORAL
     Route: 048
     Dates: start: 20080227
  3. BUPROPION [Suspect]
     Indication: PRODUCT USED FOR UNKNOWN INDICATION
     Dates: start: 201108, end: 201108
  4. ARIPIPRAZOLE [Suspect]
     Indication: PRODUCT USED FOR UNKNOWN INDICATION
  5. PREGABALIN [Concomitant]
  6. ESZOPICLONE [Concomitant]
  7. CLONAZEPAM [Concomitant]
  8. OLANZAPINE [Concomitant]
  9. LAMOTRIGINE [Concomitant]

REACTIONS (9)
  - Convulsion [None]
  - Mood altered [None]
  - Aggression [None]
  - Blood pressure increased [None]
  - Nausea [None]
  - Vomiting [None]
  - Weight decreased [None]
  - Suicidal ideation [None]
  - Fall [None]
